FAERS Safety Report 4543043-X (Version None)
Quarter: 2004Q4

REPORT INFORMATION
  Report Type: 
  Country: None (occurrence: None)
  Receive Date: 20041229
  Receipt Date: 20041222
  Transmission Date: 20050328
  Serious: Yes (Hospitalization, Disabling)
  Sender: FDA-Public Use
  Company Number: 2004CG02584

PATIENT
  Age: 72 Year
  Sex: Male

DRUGS (4)
  1. CASODEX [Suspect]
     Indication: PROSTATE CANCER
     Dosage: 150 MG QD PO
     Route: 048
     Dates: start: 19980107, end: 20041210
  2. APRANAX [Concomitant]
  3. TOPALGIC ^HOUDE' [Concomitant]
  4. CLONAZEPAM [Concomitant]

REACTIONS (2)
  - OSTEOPOROSIS [None]
  - WEIGHT DECREASED [None]
